FAERS Safety Report 10252600 (Version 1)
Quarter: 2014Q2

REPORT INFORMATION
  Report Type: Spontaneous
  Country: US (occurrence: US)
  Receive Date: 20140623
  Receipt Date: 20140623
  Transmission Date: 20141212
  Serious: No
  Sender: FDA-Public Use
  Company Number: US-B.I. PHARMACEUTICALS,INC./RIDGEFIELD-2014-BI-26738BP

PATIENT
  Sex: Female
  Weight: 50 kg

DRUGS (1)
  1. COMBIVENT [Suspect]
     Indication: NASOPHARYNGITIS
     Dosage: STRENGTH: 20 MCG / 100 MCG
     Route: 055
     Dates: start: 2012

REACTIONS (5)
  - Secretion discharge [Not Recovered/Not Resolved]
  - Nasopharyngitis [Not Recovered/Not Resolved]
  - Cough [Not Recovered/Not Resolved]
  - Overdose [Not Recovered/Not Resolved]
  - Off label use [Not Recovered/Not Resolved]
